FAERS Safety Report 13746502 (Version 2)
Quarter: 2017Q3

REPORT INFORMATION
  Report Type: Report from Study
  Country: JP (occurrence: JP)
  Receive Date: 20170712
  Receipt Date: 20170911
  Transmission Date: 20171127
  Serious: Yes (Life-Threatening)
  Sender: FDA-Public Use
  Company Number: JP-ACTELION-A-CH2017-156207

PATIENT
  Age: 8 Month
  Sex: Female

DRUGS (5)
  1. OPSUMIT [Suspect]
     Active Substance: MACITENTAN
     Dosage: 0.5 MG, QD
     Route: 048
     Dates: start: 20170218, end: 20170220
  2. ADCIRCA [Suspect]
     Active Substance: TADALAFIL
     Indication: PULMONARY ARTERIAL HYPERTENSION
     Dosage: 0.9 MG, BID
     Route: 048
     Dates: start: 20170222, end: 20170223
  3. OPSUMIT [Suspect]
     Active Substance: MACITENTAN
     Indication: PULMONARY ARTERIAL HYPERTENSION
     Dosage: 1 MG, QD
     Route: 048
     Dates: start: 20170221
  4. ADCIRCA [Suspect]
     Active Substance: TADALAFIL
     Dosage: 1.8 MG, BID
     Route: 048
     Dates: start: 20170224
  5. OXYGEN. [Concomitant]
     Active Substance: OXYGEN

REACTIONS (3)
  - Pulmonary congestion [Unknown]
  - Pulmonary vein stenosis [Unknown]
  - Concomitant disease aggravated [Unknown]

NARRATIVE: CASE EVENT DATE: 20170227
